FAERS Safety Report 17864706 (Version 6)
Quarter: 2020Q3

REPORT INFORMATION
  Report Type: Spontaneous
  Country: US (occurrence: US)
  Receive Date: 20200605
  Receipt Date: 20200922
  Transmission Date: 20201103
  Serious: Yes (Other)
  Sender: FDA-Public Use
  Company Number: US-GLAXOSMITHKLINE-US2020AMR092282

PATIENT
  Sex: Female

DRUGS (2)
  1. ZEJULA [Suspect]
     Active Substance: NIRAPARIB
     Dosage: 300 MG, QD
     Route: 048
     Dates: end: 20200801
  2. ZEJULA [Suspect]
     Active Substance: NIRAPARIB
     Indication: INTRADUCTAL PROLIFERATIVE BREAST LESION
     Dosage: 300 MG, DAILY
     Route: 048
     Dates: start: 20200501

REACTIONS (12)
  - Constipation [Unknown]
  - Blood pressure increased [Recovering/Resolving]
  - White blood cell count decreased [Unknown]
  - Platelet count decreased [Unknown]
  - Malaise [Unknown]
  - Feeling abnormal [Unknown]
  - Head titubation [Unknown]
  - Parkinson^s disease [Unknown]
  - Palpitations [Unknown]
  - Heart rate increased [Not Recovered/Not Resolved]
  - Anxiety [Unknown]
  - Tremor [Unknown]
